FAERS Safety Report 4816719-4 (Version None)
Quarter: 2005Q4

REPORT INFORMATION
  Report Type: 
  Country: None (occurrence: None)
  Receive Date: 20051031
  Receipt Date: 20051031
  Transmission Date: 20060501
  Serious: Yes (Other)
  Sender: FDA-Public Use
  Company Number: None

PATIENT
  Age: 58 Year
  Sex: Male
  Weight: 87.0906 kg

DRUGS (1)
  1. VYTORIN [Suspect]
     Indication: BLOOD CHOLESTEROL INCREASED
     Dosage: 1 TABLET-10/20- DAILY PO
     Route: 048
     Dates: start: 20050518, end: 20051024

REACTIONS (9)
  - ASTHENIA [None]
  - DYSPHAGIA [None]
  - DYSSTASIA [None]
  - GROIN PAIN [None]
  - MOBILITY DECREASED [None]
  - MUSCLE ENZYME INCREASED [None]
  - MUSCLE STRAIN [None]
  - PAIN [None]
  - PNEUMONIA [None]
